FAERS Safety Report 23435005 (Version 8)
Quarter: 2024Q3

REPORT INFORMATION
  Report Type: Report from Study
  Country: ES (occurrence: ES)
  Receive Date: 20240123
  Receipt Date: 20240919
  Transmission Date: 20241017
  Serious: Yes (Hospitalization, Other)
  Sender: XERIS PHARMACEUTICALS
  Company Number: ES-BRIAN CONNER SVP QUALITY AND CHIEF COMPLIANCE OFFICER-2024XER00020

PATIENT
  Age: 39 Year
  Sex: Female
  Weight: 53.5 kg

DRUGS (22)
  1. RECORLEV [Suspect]
     Active Substance: LEVOKETOCONAZOLE
     Indication: Cushing^s syndrome
     Dosage: 750 MG PER DAY
     Dates: start: 20210710, end: 20240103
  2. RECORLEV [Suspect]
     Active Substance: LEVOKETOCONAZOLE
     Dosage: 450 MG PER DAY
     Dates: start: 20240110, end: 20240116
  3. RECORLEV [Suspect]
     Active Substance: LEVOKETOCONAZOLE
     Dosage: 600 MG PER DAY
     Dates: start: 20240117, end: 20240330
  4. RECORLEV [Suspect]
     Active Substance: LEVOKETOCONAZOLE
     Dosage: 150 MG, 2X/DAY
     Dates: start: 20240411, end: 20240413
  5. RECORLEV [Suspect]
     Active Substance: LEVOKETOCONAZOLE
     Dosage: 450 MG/DAY
     Dates: start: 20240414, end: 20240423
  6. RECORLEV [Suspect]
     Active Substance: LEVOKETOCONAZOLE
     Dosage: 300 MG, 2X/DAY
     Dates: start: 20240424, end: 20240701
  7. RECORLEV [Suspect]
     Active Substance: LEVOKETOCONAZOLE
     Dosage: 300 MG IN THE MORNING, 450 MG IN THE EVENING
     Dates: start: 20240702, end: 20240722
  8. RECORLEV [Suspect]
     Active Substance: LEVOKETOCONAZOLE
     Dosage: 450 MG, 2X/DAY (900 MG/DAY)
     Dates: start: 20240723, end: 20240909
  9. RECORLEV [Suspect]
     Active Substance: LEVOKETOCONAZOLE
     Dosage: 750 MG PER DAY
     Dates: start: 20240910
  10. DENOSUMAB [Concomitant]
     Active Substance: DENOSUMAB
     Indication: Osteoporosis
     Dosage: 60 MG, 2X/YEAR
     Route: 030
     Dates: start: 20191029
  11. LORAZEPAM [Concomitant]
     Active Substance: LORAZEPAM
     Indication: Insomnia
     Dosage: 1 MG, 1X/DAY AT BEDTIME
     Route: 048
  12. CALCIUM CARBONATE [Concomitant]
     Active Substance: CALCIUM CARBONATE
     Dosage: 500 MG, 2X/DAY
     Route: 048
     Dates: start: 2019
  13. CALCIUM CARBONATE [Concomitant]
     Active Substance: CALCIUM CARBONATE
     Dosage: 500 MG, 1X/DAY
     Route: 048
  14. LORMETAZEPAM [Concomitant]
     Active Substance: LORMETAZEPAM
     Dosage: 1 MG, 1X/DAY
  15. SPIRONOLACTONE [Concomitant]
     Active Substance: SPIRONOLACTONE
     Dosage: 25 MG, 1X/DAY
     Route: 048
  16. SPIRONOLACTONE [Concomitant]
     Active Substance: SPIRONOLACTONE
     Dosage: 25 MG, 2X/DAY
     Dates: start: 202406, end: 2024
  17. SPIRONOLACTONE [Concomitant]
     Active Substance: SPIRONOLACTONE
     Dosage: 50 MG, 2X/DAY
     Dates: start: 2024
  18. POTASSIUM CHLORIDE [Concomitant]
     Active Substance: POTASSIUM CHLORIDE
     Dosage: 600 MG, 3X/DAY
     Route: 048
  19. POTASSIUM CHLORIDE [Concomitant]
     Active Substance: POTASSIUM CHLORIDE
     Dosage: 1200 MG, 1X/DAY
  20. POTASSIUM CHLORIDE [Concomitant]
     Active Substance: POTASSIUM CHLORIDE
     Dosage: 600 MG, 2X/DAY
  21. ESOMEPRAZOLE [Concomitant]
     Active Substance: ESOMEPRAZOLE
     Dosage: 20 MG, 2X/DAY
     Route: 048
     Dates: end: 20240901
  22. METHYRAPONE [Concomitant]
     Dosage: 250 MG, 3X/DAY
     Route: 048

REACTIONS (38)
  - Hypertransaminasaemia [Not Recovered/Not Resolved]
  - Hepatotoxicity [Recovered/Resolved]
  - Hyperadrenocorticism [Not Recovered/Not Resolved]
  - Pneumonia [Not Recovered/Not Resolved]
  - Pertussis [Unknown]
  - Herpes oesophagitis [Unknown]
  - Hepatomegaly [Unknown]
  - White blood cell count decreased [Recovering/Resolving]
  - Nervousness [Unknown]
  - Blood sodium increased [Recovered/Resolved]
  - Blood chloride increased [Recovered/Resolved]
  - C-reactive protein increased [Unknown]
  - Blood calcium decreased [Recovered/Resolved]
  - Blood phosphorus decreased [Unknown]
  - Blood albumin decreased [Unknown]
  - Protein total decreased [Recovered/Resolved]
  - Muscular weakness [Unknown]
  - Odynophagia [Unknown]
  - Gastric ulcer [Unknown]
  - Creatine urine increased [Recovering/Resolving]
  - Mean cell volume increased [Unknown]
  - Mean cell haemoglobin increased [Unknown]
  - Rhinorrhoea [Unknown]
  - Sneezing [Unknown]
  - Cough [Unknown]
  - Dysphonia [Unknown]
  - Hepatic mass [Not Recovered/Not Resolved]
  - Blood uric acid decreased [Unknown]
  - Nasopharyngitis [Recovering/Resolving]
  - Upper respiratory tract infection [Recovering/Resolving]
  - Hypertension [Recovering/Resolving]
  - Hypokalaemia [Recovered/Resolved]
  - Abdominal discomfort [Unknown]
  - Fatigue [Unknown]
  - Decreased appetite [Unknown]
  - Nausea [Unknown]
  - Abdominal pain [Unknown]
  - Glucocorticoid deficiency [Not Recovered/Not Resolved]

NARRATIVE: CASE EVENT DATE: 20231222
